FAERS Safety Report 5240731-7 (Version None)
Quarter: 2007Q1

REPORT INFORMATION
  Report Type: 
  Country: None (occurrence: None)
  Receive Date: 20061208
  Receipt Date: 20051018
  Transmission Date: 20070707
  Serious: Yes (Other)
  Sender: FDA-Public Use
  Company Number: 2005UW15693

PATIENT
  Age: 50 Year
  Sex: Female

DRUGS (3)
  1. CRESTOR [Suspect]
     Indication: HYPERTENSION
     Dosage: 10 MG
  2. SYNTHROID [Concomitant]
  3. ACTONEL [Concomitant]

REACTIONS (2)
  - EPIGASTRIC DISCOMFORT [None]
  - HOT FLUSH [None]
